FAERS Safety Report 5995459-2 (Version None)
Quarter: 2008Q4

REPORT INFORMATION
  Report Type: 
  Country: None (occurrence: None)
  Receive Date: 20081212
  Receipt Date: 20080930
  Transmission Date: 20090506
  Serious: No
  Sender: FDA-Public Use
  Company Number: US-ABBOTT-08P-163-0478964-00

PATIENT
  Age: 45 Year
  Sex: Female

DRUGS (9)
  1. HUMIRA [Suspect]
     Indication: PSORIASIS
     Route: 058
     Dates: start: 20080701
  2. ETANERCEPT [Suspect]
     Indication: PSORIASIS
     Dates: start: 20080101
  3. ETANERCEPT [Suspect]
     Dates: end: 20080701
  4. VENLAFAXINE HCL [Suspect]
     Indication: DRUG USE FOR UNKNOWN INDICATION
  5. SERTRALINE [Suspect]
     Indication: DRUG USE FOR UNKNOWN INDICATION
  6. LEVOTHYROXINE SODIUM [Suspect]
     Indication: HYPOTHYROIDISM
  7. LEVOTHYROXINE SODIUM [Suspect]
  8. GLIMEPIRIDE [Suspect]
     Indication: DIABETES MELLITUS
  9. EZETIMIBE [Suspect]
     Indication: BLOOD CHOLESTEROL INCREASED

REACTIONS (1)
  - HEPATIC ENZYME INCREASED [None]
